FAERS Safety Report 8201334-5 (Version None)
Quarter: 2012Q1

REPORT INFORMATION
  Report Type: 
  Country: None (occurrence: None)
  Receive Date: 20120312
  Receipt Date: 20120301
  Transmission Date: 20120608
  Serious: Yes (Hospitalization)
  Sender: FDA-Public Use
  Company Number: US-SANOFI-AVENTIS-2012SA014446

PATIENT
  Age: 59 Year
  Sex: Female

DRUGS (5)
  1. CARBOPLATIN [Concomitant]
  2. TRASTUZUMAB [Concomitant]
  3. DOCETAXEL [Suspect]
     Route: 065
  4. LEVOTHYROXINE SODIUM [Concomitant]
     Route: 048
  5. ANTIBIOTICS [Concomitant]

REACTIONS (10)
  - RASH [None]
  - TENDERNESS [None]
  - RED BLOOD CELL SEDIMENTATION RATE INCREASED [None]
  - PAIN [None]
  - CAROTIDYNIA [None]
  - PYREXIA [None]
  - INFLAMMATION [None]
  - C-REACTIVE PROTEIN INCREASED [None]
  - CHILLS [None]
  - FATIGUE [None]
